FAERS Safety Report 25230705 (Version 1)
Quarter: 2025Q2

REPORT INFORMATION
  Report Type: Spontaneous
  Country: US (occurrence: US)
  Receive Date: 20250423
  Receipt Date: 20250423
  Transmission Date: 20250716
  Serious: No
  Sender: SANOFI AVENTIS
  Company Number: US-SA-2025SA116700

PATIENT
  Age: 50 Year
  Sex: Male

DRUGS (16)
  1. DUPIXENT [Suspect]
     Active Substance: DUPILUMAB
     Indication: Neurodermatitis
     Dosage: 300 MG, QOW
     Route: 058
     Dates: start: 20240312
  2. CLARISCAN [Concomitant]
     Active Substance: GADOTERATE MEGLUMINE
  3. CORDRAN [Concomitant]
     Active Substance: FLURANDRENOLIDE
  4. ERYTHROMYCIN [Concomitant]
     Active Substance: ERYTHROMYCIN
  5. LACOSAMIDE [Concomitant]
     Active Substance: LACOSAMIDE
  6. LEVETIRACETAM [Concomitant]
     Active Substance: LEVETIRACETAM
  7. HYDROCHLOROTHIAZIDE\LISINOPRIL [Concomitant]
     Active Substance: HYDROCHLOROTHIAZIDE\LISINOPRIL
  8. LISINOPRIL [Concomitant]
     Active Substance: LISINOPRIL
  9. LOTEPREDNOL [Concomitant]
     Active Substance: LOTEPREDNOL
  10. METHOCARBAMOL [Concomitant]
     Active Substance: METHOCARBAMOL
  11. NEBIVOLOL [Concomitant]
     Active Substance: NEBIVOLOL
  12. OXYCODONE [Concomitant]
     Active Substance: OXYCODONE
  13. OZEMPIC [Concomitant]
     Active Substance: SEMAGLUTIDE
  14. QUETIAPINE [Concomitant]
     Active Substance: QUETIAPINE
  15. SUMATRIPTAN [Concomitant]
     Active Substance: SUMATRIPTAN
  16. TRIAMCINOLONE ACETONIDE [Concomitant]
     Active Substance: TRIAMCINOLONE ACETONIDE

REACTIONS (3)
  - Infection [Unknown]
  - Pyrexia [Unknown]
  - Hyperhidrosis [Unknown]
